FAERS Safety Report 25371676 (Version 1)
Quarter: 2025Q2

REPORT INFORMATION
  Report Type: Spontaneous
  Country: US (occurrence: US)
  Receive Date: 20250529
  Receipt Date: 20250529
  Transmission Date: 20250716
  Serious: No
  Sender: GLAXOSMITHKLINE
  Company Number: US-GSK-US2025063891

PATIENT
  Age: 42 Year
  Sex: Female

DRUGS (1)
  1. BENLYSTA [Suspect]
     Active Substance: BELIMUMAB
     Indication: Systemic lupus erythematosus
     Dates: start: 202009

REACTIONS (20)
  - Ataxia [Unknown]
  - Dizziness [Unknown]
  - Pulmonary pain [Unknown]
  - Head discomfort [Unknown]
  - Asthenia [Unknown]
  - Pain [Unknown]
  - Fatigue [Unknown]
  - Flushing [Unknown]
  - Dyspnoea [Unknown]
  - Palpitations [Unknown]
  - Skin burning sensation [Unknown]
  - Nodule [Unknown]
  - Limb discomfort [Unknown]
  - Arthralgia [Unknown]
  - Pain in extremity [Unknown]
  - Feeling of body temperature change [Unknown]
  - Piloerection [Unknown]
  - Oral mucosal exfoliation [Unknown]
  - Condition aggravated [Unknown]
  - Product preparation error [Unknown]

NARRATIVE: CASE EVENT DATE: 20250428
